FAERS Safety Report 8174405-X (Version None)
Quarter: 2012Q1

REPORT INFORMATION
  Report Type: 
  Country: None (occurrence: None)
  Receive Date: 20120229
  Receipt Date: 20120221
  Transmission Date: 20120608
  Serious: Yes (Other)
  Sender: FDA-Public Use
  Company Number: US-ELI_LILLY_AND_COMPANY-US201202006498

PATIENT
  Age: 75 Year
  Sex: Female

DRUGS (12)
  1. SPIRONOLACTONE [Concomitant]
  2. CITALOPRAM HYDROBROMIDE [Concomitant]
     Dosage: UNK
  3. EFFIENT [Suspect]
     Dosage: 10 MG, QD
     Dates: start: 20110701
  4. AMLODIPINE [Concomitant]
  5. SYNTHROID [Concomitant]
  6. LOVASTATIN [Concomitant]
     Dosage: UNK
  7. ASPIRIN [Concomitant]
     Dosage: UNK
  8. CILOSTAZOL [Concomitant]
  9. DIGOXIN [Concomitant]
  10. DIOVAN [Concomitant]
  11. ZOLOFT [Concomitant]
  12. ATENOLOL [Concomitant]

REACTIONS (3)
  - FALL [None]
  - OFF LABEL USE [None]
  - THROMBOEMBOLECTOMY [None]
